FAERS Safety Report 17030302 (Version 1)
Quarter: 2019Q4

REPORT INFORMATION
  Report Type: Other
  Country: CA (occurrence: CA)
  Receive Date: 20191114
  Receipt Date: 20191114
  Transmission Date: 20200122
  Serious: Yes (Death)
  Sender: FDA-Public Use
  Company Number: CA-PFIZER INC-2019486831

PATIENT

DRUGS (9)
  1. XELODA [Suspect]
     Active Substance: CAPECITABINE
     Dosage: 750 MG/M2, 2X/DAY
     Route: 048
  2. IRINOTECAN HCL [Suspect]
     Active Substance: IRINOTECAN HYDROCHLORIDE
     Indication: COLORECTAL CANCER
     Dosage: 160 MG/M2, UNK
     Route: 042
  3. IRINOTECAN HCL [Suspect]
     Active Substance: IRINOTECAN HYDROCHLORIDE
     Dosage: 160 MG/M2, UNK
     Route: 042
  4. OXALIPLATIN. [Suspect]
     Active Substance: OXALIPLATIN
     Dosage: 75 MG/M2, UNK
     Route: 042
  5. OXALIPLATIN. [Suspect]
     Active Substance: OXALIPLATIN
     Indication: COLORECTAL CANCER
     Dosage: 75 MG/M2, UNK
     Route: 042
  6. XELODA [Suspect]
     Active Substance: CAPECITABINE
     Indication: COLORECTAL CANCER
     Dosage: 750 MG/M2, 2X/DAY
     Route: 048
  7. XELODA [Suspect]
     Active Substance: CAPECITABINE
     Dosage: 750 MG/M2, 2X/DAY
     Route: 048
  8. OXALIPLATIN. [Suspect]
     Active Substance: OXALIPLATIN
     Dosage: 75 MG/M2, UNK
     Route: 042
  9. IRINOTECAN HCL [Suspect]
     Active Substance: IRINOTECAN HYDROCHLORIDE
     Dosage: 160 MG/M2, UNK
     Route: 042

REACTIONS (1)
  - Febrile neutropenia [Fatal]
